FAERS Safety Report 9321448 (Version 2)
Quarter: 2013Q4

REPORT INFORMATION
  Report Type: Spontaneous
  Country: US (occurrence: US)
  Receive Date: 20130531
  Receipt Date: 20131121
  Transmission Date: 20140711
  Serious: Yes (Hospitalization)
  Sender: FDA-Public Use
  Company Number: US-B.I. PHARMACEUTICALS,INC./RIDGEFIELD-2013-BI-14922BP

PATIENT
  Age: 68 Year
  Sex: Male
  Weight: 81.65 kg

DRUGS (12)
  1. PRADAXA [Suspect]
     Indication: ATRIAL FIBRILLATION
     Dates: start: 20101117, end: 20120618
  2. METOPROLOL [Concomitant]
     Dates: end: 201206
  3. LASIX [Concomitant]
     Dates: end: 201206
  4. METOLAZONE [Concomitant]
     Dates: end: 201206
  5. AVODART [Concomitant]
     Dates: end: 201206
  6. PRILOSEC [Concomitant]
     Dates: end: 201206
  7. SOTALOL [Concomitant]
     Dates: end: 201206
  8. DIAZEPAM [Concomitant]
     Dates: end: 201206
  9. ISOSORBIDE MONONITRATE [Concomitant]
  10. THEOPHYLLINE [Concomitant]
     Dates: end: 201206
  11. COLCHICINE [Concomitant]
     Dates: end: 201206
  12. POTASSIUM [Concomitant]

REACTIONS (4)
  - Gastrointestinal haemorrhage [Unknown]
  - Acute myocardial infarction [Unknown]
  - Renal failure acute [Unknown]
  - Anaemia [Unknown]
